FAERS Safety Report 25575836 (Version 1)
Quarter: 2025Q3

REPORT INFORMATION
  Report Type: Spontaneous
  Country: EU (occurrence: EU)
  Receive Date: 20250718
  Receipt Date: 20250718
  Transmission Date: 20251020
  Serious: Yes (Life-Threatening, Hospitalization, Other)
  Sender: AUROBINDO
  Company Number: EU-AFSSAPS-MA2025000866

PATIENT
  Age: 19 Year
  Sex: Female

DRUGS (1)
  1. DOXYCYCLINE [Suspect]
     Active Substance: DOXYCYCLINE
     Indication: Acne
     Route: 048
     Dates: start: 20240908, end: 20240908

REACTIONS (3)
  - Tachycardia [Recovered/Resolved]
  - Loss of consciousness [Recovered/Resolved]
  - Rash maculo-papular [Recovered/Resolved]

NARRATIVE: CASE EVENT DATE: 20240908
